FAERS Safety Report 6080037-X (Version None)
Quarter: 2009Q1

REPORT INFORMATION
  Report Type: 
  Country: None (occurrence: None)
  Receive Date: 20090217
  Receipt Date: 20090206
  Transmission Date: 20090719
  Serious: Yes (Hospitalization)
  Sender: FDA-Public Use
  Company Number: JP-BAYER-200910401BYL

PATIENT
  Age: 65 Year
  Sex: Male
  Weight: 56 kg

DRUGS (12)
  1. NEXAVAR [Suspect]
     Indication: RENAL CELL CARCINOMA STAGE IV
     Dosage: TOTAL DAILY DOSE: 800 MG  UNIT DOSE: 200 MG
     Route: 048
     Dates: start: 20080529, end: 20080620
  2. NEXAVAR [Suspect]
     Dosage: UNIT DOSE: 200 MG
     Route: 048
     Dates: start: 20080703
  3. NEXAVAR [Suspect]
     Dosage: TOTAL DAILY DOSE: 800 MG  UNIT DOSE: 200 MG
     Route: 048
     Dates: start: 20080821, end: 20081111
  4. NEXAVAR [Suspect]
     Dosage: TOTAL DAILY DOSE: 800 MG  UNIT DOSE: 200 MG
     Route: 048
     Dates: start: 20081224
  5. CYANOCOBALAMIN [Concomitant]
     Route: 048
     Dates: start: 20080529
  6. PREDONINE [Concomitant]
     Route: 048
     Dates: start: 20080529
  7. LIPITOR [Concomitant]
     Dosage: TOTAL DAILY DOSE: 10 MG
     Route: 048
     Dates: start: 20080529
  8. MUCOSTA [Concomitant]
     Route: 048
     Dates: start: 20080529
  9. NORVASC [Concomitant]
     Route: 048
     Dates: start: 20080529
  10. NEORAL [Concomitant]
     Dosage: AS USED: 25 MG
     Route: 048
     Dates: start: 20080529
  11. TAKEPRON [Concomitant]
     Dosage: TOTAL DAILY DOSE: 30 MG
     Route: 048
     Dates: start: 20080529
  12. URSO 250 [Concomitant]
     Route: 048
     Dates: start: 20080529

REACTIONS (3)
  - AORTIC VALVE STENOSIS [None]
  - DIARRHOEA [None]
  - PALMAR-PLANTAR ERYTHRODYSAESTHESIA SYNDROME [None]
